FAERS Safety Report 4973021-8 (Version None)
Quarter: 2006Q2

REPORT INFORMATION
  Report Type: 
  Country: None (occurrence: None)
  Receive Date: 20060410
  Receipt Date: 20060405
  Transmission Date: 20061013
  Serious: No
  Sender: FDA-Public Use
  Company Number: Q06-004

PATIENT
  Age: 68 Year
  Sex: Male
  Weight: 82.1011 kg

DRUGS (10)
  1. SAMARIUM  SM-153 LEXIDRONAM [Suspect]
     Indication: MULTIPLE MYELOMA
     Dosage: 0.25MCI/KG (21.2 MCI) ONLY DOSE
     Route: 042
     Dates: start: 20051208
  2. VELCADE [Suspect]
     Indication: MULTIPLE MYELOMA
     Dosage: 1MG/M2 (1.9MG) IVP
     Route: 042
     Dates: start: 20051206
  3. VELCADE [Suspect]
     Indication: MULTIPLE MYELOMA
     Dosage: 1MG/M2 (1.9MG) IVP
     Route: 042
     Dates: start: 20051209
  4. VELCADE [Suspect]
     Indication: MULTIPLE MYELOMA
     Dosage: 1MG/M2 (1.9MG) IVP
     Route: 042
     Dates: start: 20051212
  5. VELCADE [Suspect]
     Indication: MULTIPLE MYELOMA
     Dosage: 1MG/M2 (1.9MG) IVP
     Route: 042
     Dates: start: 20051215
  6. THALIDOMIDE [Concomitant]
  7. MEDROL [Concomitant]
  8. BIAXIN [Concomitant]
  9. ZOMETA [Concomitant]
  10. PROCRIT [Concomitant]

REACTIONS (2)
  - BLOOD CREATININE INCREASED [None]
  - HYPERKALAEMIA [None]
